FAERS Safety Report 12399386 (Version 1)
Quarter: 2016Q2

REPORT INFORMATION
  Report Type: Spontaneous
  Country: US (occurrence: US)
  Receive Date: 20160524
  Receipt Date: 20160524
  Transmission Date: 20160815
  Serious: No
  Sender: FDA-Public Use
  Company Number: US-PERNIX THERAPEUTICS-2016PT000041

PATIENT

DRUGS (18)
  1. THERAPEUTIC MULTIVITAMIN           /01824401/ [Concomitant]
     Dosage: 1 TABLET, DAILY
  2. OXYCONTIN [Concomitant]
     Active Substance: OXYCODONE HYDROCHLORIDE
     Dosage: 40 MG, EVERY 8 HOURS
  3. FENTANYL. [Concomitant]
     Active Substance: FENTANYL
     Dosage: 1 PATCH TO SKIN EVERY 72 HOURS AS NEEDED
  4. VITAMIN D3 [Concomitant]
     Active Substance: CHOLECALCIFEROL
     Dosage: 1000 UNITS, DAILY
  5. PROCHLORPERAZINE. [Concomitant]
     Active Substance: PROCHLORPERAZINE
     Dosage: 10 MG, EVERY 6 HRS PRN
  6. ALBUTEROL                          /00139501/ [Concomitant]
     Active Substance: ALBUTEROL
     Dosage: 2 PUFFS, EVERY 4 HRS PRN
  7. FLOVENT [Concomitant]
     Active Substance: FLUTICASONE PROPIONATE
     Dosage: 1 PUFF, TWICE DAILY
  8. DIFLUCAN [Concomitant]
     Active Substance: FLUCONAZOLE
     Dosage: 100 MG, DAILY
  9. IBRANCE [Concomitant]
     Active Substance: PALBOCICLIB
     Dosage: 125 MG, DAILY 21 OUT OF 28 DAYS
  10. ZOFRAN [Concomitant]
     Active Substance: ONDANSETRON HYDROCHLORIDE
     Dosage: 8 MG, EVERY 8 HRS PRN
  11. CALCIUM [Concomitant]
     Active Substance: CALCIUM
     Dosage: 2000 MG, DAILY
  12. RESTORIL                           /00393701/ [Concomitant]
     Dosage: 15 MG, AT BEDTIME
  13. XARELTO [Concomitant]
     Active Substance: RIVAROXABAN
     Dosage: 20 MG, DAILY
  14. PEPCID [Concomitant]
     Active Substance: FAMOTIDINE
     Dosage: 20 MG, AT BEDTIME TWICE DAILY
  15. HYDROCODONE [Suspect]
     Active Substance: HYDROCODONE
     Indication: PRODUCT USED FOR UNKNOWN INDICATION
  16. GABAPENTIN. [Concomitant]
     Active Substance: GABAPENTIN
     Dosage: 300 MG, 3 TIMES DAILY
  17. FEMARA [Concomitant]
     Active Substance: LETROZOLE
     Dosage: 2.5 MG, DAILY
  18. DILAUDID [Concomitant]
     Active Substance: HYDROMORPHONE HYDROCHLORIDE
     Dosage: 1-2 TABLET, EVERY 4 HRS PRN

REACTIONS (2)
  - Nausea [Unknown]
  - Vomiting [Unknown]
